FAERS Safety Report 17360316 (Version 1)
Quarter: 2020Q1

REPORT INFORMATION
  Report Type: Spontaneous
  Country: US (occurrence: US)
  Receive Date: 20200203
  Receipt Date: 20200203
  Transmission Date: 20200409
  Serious: Yes (Other)
  Sender: FDA-Public Use
  Company Number: US-ELI_LILLY_AND_COMPANY-US202001013433

PATIENT
  Age: 70 Year
  Sex: Female

DRUGS (3)
  1. FORTEO [Suspect]
     Active Substance: TERIPARATIDE
     Indication: SPINAL FRACTURE
  2. PROLIA [Concomitant]
     Active Substance: DENOSUMAB
     Indication: PRODUCT USED FOR UNKNOWN INDICATION
  3. FORTEO [Suspect]
     Active Substance: TERIPARATIDE
     Indication: BONE DISORDER
     Dosage: UNK, UNKNOWN
     Route: 065

REACTIONS (3)
  - Spinal compression fracture [Unknown]
  - Uterine cancer [Unknown]
  - Osteoarthritis [Unknown]
